FAERS Safety Report 21565590 (Version 1)
Quarter: 2022Q4

REPORT INFORMATION
  Report Type: Spontaneous
  Country: KR (occurrence: KR)
  Receive Date: 20221108
  Receipt Date: 20221108
  Transmission Date: 20230113
  Serious: Yes (Hospitalization, Other)
  Sender: FDA-Public Use
  Company Number: KR-GLAXOSMITHKLINE-KR2022APC161979

PATIENT

DRUGS (1)
  1. LAMICTAL [Suspect]
     Active Substance: LAMOTRIGINE
     Indication: Partial seizures
     Dosage: 10 MG, QD
     Route: 048
     Dates: start: 20171211

REACTIONS (3)
  - Pyrexia [Recovering/Resolving]
  - Rash [Recovering/Resolving]
  - Thrombocytopenia [Recovering/Resolving]
